FAERS Safety Report 4702464-2 (Version None)
Quarter: 2005Q2

REPORT INFORMATION
  Report Type: 
  Country: None (occurrence: None)
  Receive Date: 20050629
  Receipt Date: 20010810
  Transmission Date: 20051028
  Serious: Yes (Hospitalization)
  Sender: FDA-Public Use
  Company Number: 10946010

PATIENT
  Age: 15 Day
  Sex: Female
  Weight: 3 kg

DRUGS (5)
  1. ZERIT [Suspect]
     Dosage: EXPOSURE INITIATED IN WEEK 19 OF GESTATION.
     Route: 064
  2. ZERIT [Suspect]
     Indication: PROPHYLAXIS
     Route: 048
     Dates: start: 20000804, end: 20000913
  3. VIDEX [Suspect]
     Dosage: EXPOSURE INITIATED IN WEEK 19 OF GESTATION.
     Route: 064
     Dates: end: 20000804
  4. VIRACEPT [Suspect]
     Dosage: EXPOSURE INITIATED IN WEEK 19 OF GESTATION.
     Route: 064
     Dates: end: 20000804
  5. RETROVIR [Suspect]
     Dosage: EXPOSURE AT DELIVERY
     Route: 064
     Dates: start: 20000804, end: 20000804

REACTIONS (11)
  - ALANINE AMINOTRANSFERASE INCREASED [None]
  - ANAEMIA [None]
  - ASPARTATE AMINOTRANSFERASE INCREASED [None]
  - BLOOD CREATINE PHOSPHOKINASE INCREASED [None]
  - BLOOD LACTIC ACID INCREASED [None]
  - GAMMA-GLUTAMYLTRANSFERASE INCREASED [None]
  - HEPATOMEGALY [None]
  - HYPERTRIGLYCERIDAEMIA [None]
  - HYPOTONIA [None]
  - MICROCYTIC ANAEMIA [None]
  - PLATELET COUNT INCREASED [None]
